FAERS Safety Report 21044371 (Version 1)
Quarter: 2022Q3

REPORT INFORMATION
  Report Type: Spontaneous
  Country: ES (occurrence: ES)
  Receive Date: 20220705
  Receipt Date: 20220705
  Transmission Date: 20221027
  Serious: Yes (Hospitalization)
  Sender: FDA-Public Use
  Company Number: None

PATIENT
  Age: 8 Year
  Sex: Female
  Weight: 34.5 kg

DRUGS (13)
  1. LEVETIRACETAM [Suspect]
     Active Substance: LEVETIRACETAM
     Indication: Seizure
     Dosage: 175 MILLIGRAM, 2X/DAY (BID)
     Route: 048
     Dates: start: 20220603
  2. METRONIDAZOLE [Suspect]
     Active Substance: METRONIDAZOLE
     Indication: Sinusitis
     Dosage: 30 MG /KG DAY
     Route: 041
     Dates: start: 20220602
  3. METAMIZOLE SODIUM [Suspect]
     Active Substance: METAMIZOLE SODIUM
     Indication: Pain
     Route: 040
     Dates: start: 20220529
  4. CEFOTAXIME SODIUM [Suspect]
     Active Substance: CEFOTAXIME SODIUM
     Indication: Sinusitis
     Dosage: 300 MG/KG/DAY
     Route: 040
     Dates: start: 20220602
  5. CEFOTAXIME SODIUM [Suspect]
     Active Substance: CEFOTAXIME SODIUM
     Dosage: 200MG/KG/DAY
     Route: 040
     Dates: start: 20220528, end: 20220601
  6. UTABON [Concomitant]
     Indication: Product used for unknown indication
     Dosage: 1 /12H
  7. FLUTICASONE PROPIONATE [Concomitant]
     Active Substance: FLUTICASONE PROPIONATE
     Indication: Product used for unknown indication
     Dosage: 1 DOSIS/12H
     Dates: start: 20220528
  8. METHYLPREDNISOLONE [Concomitant]
     Active Substance: METHYLPREDNISOLONE
     Indication: Sinusitis
     Route: 042
     Dates: start: 20220606, end: 20220607
  9. METHYLPREDNISOLONE [Concomitant]
     Active Substance: METHYLPREDNISOLONE
     Dosage: 15 MILLIGRAM, ONCE DAILY (QD)
     Route: 042
     Dates: start: 20220608, end: 20220608
  10. METHYLPREDNISOLONE [Concomitant]
     Active Substance: METHYLPREDNISOLONE
     Dosage: 10 MILLIGRAM, ONCE DAILY (QD)
     Route: 042
     Dates: start: 20220609, end: 20220610
  11. METHYLPREDNISOLONE [Concomitant]
     Active Substance: METHYLPREDNISOLONE
     Dosage: 25 MILLIGRAM, ONCE DAILY (QD)
     Route: 042
     Dates: start: 20220605, end: 20220605
  12. METHYLPREDNISOLONE [Concomitant]
     Active Substance: METHYLPREDNISOLONE
     Dosage: 30 MILLIGRAM, ONCE DAILY (QD)
     Route: 042
     Dates: start: 20220604, end: 20220604
  13. METHYLPREDNISOLONE [Concomitant]
     Active Substance: METHYLPREDNISOLONE
     Dosage: 40 MILLIGRAM, ONCE DAILY (QD)
     Route: 042
     Dates: start: 20220528, end: 20220603

REACTIONS (1)
  - Neutropenia [Unknown]

NARRATIVE: CASE EVENT DATE: 20220616
